FAERS Safety Report 9352555 (Version 6)
Quarter: 2016Q1

REPORT INFORMATION
  Report Type: Report from Study
  Country: CA (occurrence: CA)
  Receive Date: 20130618
  Receipt Date: 20160315
  Transmission Date: 20160526
  Serious: Yes (Other)
  Sender: FDA-Public Use
  Company Number: CA-ROCHE-1237725

PATIENT
  Age: 54 Year
  Sex: Female
  Weight: 71.2 kg

DRUGS (8)
  1. RITUXAN [Suspect]
     Active Substance: RITUXIMAB
     Indication: ARTHRITIS
     Dosage: LAST RITUXIMAB INFUSION WAS ON 05/MAY/2014.
     Route: 042
     Dates: start: 20120807
  2. ACETAMINOPHEN. [Concomitant]
     Active Substance: ACETAMINOPHEN
     Indication: PREMEDICATION
     Route: 048
     Dates: start: 20160226
  3. METHYLPREDNISOLONE. [Concomitant]
     Active Substance: METHYLPREDNISOLONE
     Indication: PREMEDICATION
     Route: 042
     Dates: start: 20160226
  4. PREDNISONE. [Concomitant]
     Active Substance: PREDNISONE
  5. DIPHENHYDRAMINE. [Concomitant]
     Active Substance: DIPHENHYDRAMINE
     Indication: PREMEDICATION
     Route: 048
     Dates: start: 20160226
  6. RITUXAN [Suspect]
     Active Substance: RITUXIMAB
     Route: 042
     Dates: start: 20160226
  7. DIDROCAL [Suspect]
     Active Substance: CALCIUM CARBONATE\ETIDRONATE DISODIUM
     Indication: PRODUCT USED FOR UNKNOWN INDICATION
     Route: 065
     Dates: end: 201305
  8. IMURAN [Concomitant]
     Active Substance: AZATHIOPRINE

REACTIONS (13)
  - Laziness [Not Recovered/Not Resolved]
  - Gastric ulcer [Unknown]
  - Injection site extravasation [Recovered/Resolved]
  - Nasal congestion [Not Recovered/Not Resolved]
  - Sluggishness [Not Recovered/Not Resolved]
  - Arthralgia [Not Recovered/Not Resolved]
  - Helicobacter test positive [Not Recovered/Not Resolved]
  - Pyrexia [Unknown]
  - Hypotension [Unknown]
  - Blood calcium increased [Unknown]
  - Influenza like illness [Not Recovered/Not Resolved]
  - Eye pain [Recovered/Resolved]
  - Fatigue [Recovered/Resolved]

NARRATIVE: CASE EVENT DATE: 201305
